FAERS Safety Report 7344788-9 (Version None)
Quarter: 2011Q1

REPORT INFORMATION
  Report Type: 
  Country: None (occurrence: None)
  Receive Date: 20110307
  Receipt Date: 20110307
  Transmission Date: 20110831
  Serious: Yes (Hospitalization)
  Sender: FDA-Public Use
  Company Number: None

PATIENT
  Sex: Male
  Weight: 61.2 kg

DRUGS (6)
  1. METOPROLOL TARTRATE [Concomitant]
  2. LEVOFLOXACIN [Concomitant]
  3. LEVETIRACETAM [Concomitant]
  4. DIGOXIN [Concomitant]
  5. PRADAXA [Suspect]
     Indication: ATRIAL FIBRILLATION
     Dosage: 150MG TWICE DAILY PO
     Route: 048
     Dates: start: 20110103, end: 20110107
  6. ASPIRIN [Suspect]
     Indication: ATRIAL FIBRILLATION
     Dosage: 81MG ONCE DAILY PO
     Route: 048
     Dates: start: 20090903, end: 20110106

REACTIONS (1)
  - LOWER GASTROINTESTINAL HAEMORRHAGE [None]
